FAERS Safety Report 5514805-7 (Version None)
Quarter: 2007Q4

REPORT INFORMATION
  Report Type: 
  Country: None (occurrence: None)
  Receive Date: 20071113
  Receipt Date: 20071109
  Transmission Date: 20080405
  Serious: Yes (Other)
  Sender: FDA-Public Use
  Company Number: US-SHR-US-2007-016936

PATIENT
  Age: 46 Year
  Sex: Female

DRUGS (3)
  1. BETASERON [Suspect]
     Indication: RELAPSING-REMITTING MULTIPLE SCLEROSIS
     Dosage: 8 MIU, EVERY 2D
     Route: 058
     Dates: start: 20070108
  2. BETASERON [Suspect]
     Dosage: 8 MIU, 2X/WEEK
     Dates: end: 20070420
  3. VITAMIN B-12 [Concomitant]
     Dosage: UNK, 1X/MONTH

REACTIONS (8)
  - ABDOMINAL MASS [None]
  - ABDOMINAL TENDERNESS [None]
  - HEADACHE [None]
  - HEPATOMEGALY [None]
  - INAPPROPRIATE SCHEDULE OF DRUG ADMINISTRATION [None]
  - INFLUENZA LIKE ILLNESS [None]
  - TREMOR [None]
  - URINARY TRACT INFECTION [None]
